FAERS Safety Report 16643434 (Version 1)
Quarter: 2019Q3

REPORT INFORMATION
  Report Type: Spontaneous
  Country: US (occurrence: US)
  Receive Date: 20190729
  Receipt Date: 20190729
  Transmission Date: 20191004
  Serious: Yes (Other)
  Sender: FDA-Public Use
  Company Number: US-IMPAX LABORATORIES, LLC-2019-IPXL-01487

PATIENT
  Sex: Male

DRUGS (1)
  1. RYTARY [Suspect]
     Active Substance: CARBIDOPA\LEVODOPA
     Indication: PARKINSON^S DISEASE
     Dosage: 2 CAPSULES THREE TIMES A DAY
     Route: 048

REACTIONS (5)
  - Blood pressure increased [Recovered/Resolved]
  - Dysphagia [Recovered/Resolved]
  - Chromaturia [Unknown]
  - Speech disorder [Unknown]
  - Hallucination [Recovered/Resolved]
